FAERS Safety Report 9076121 (Version 1)
Quarter: 2013Q1

REPORT INFORMATION
  Report Type: Report from Study
  Country: US (occurrence: US)
  Receive Date: 20130129
  Receipt Date: 20130129
  Transmission Date: 20140127
  Serious: No
  Sender: FDA-Public Use
  Company Number: US-ABBOTT-12P-163-0933416-00

PATIENT
  Age: 55 Year
  Sex: Female

DRUGS (9)
  1. HUMIRA 40 MG/0.8 ML PEN [Suspect]
     Indication: RHEUMATOID ARTHRITIS
     Dates: start: 20110831
  2. HCTZ [Suspect]
     Indication: ANXIETY
     Dates: start: 201204
  3. SULINDAC [Concomitant]
     Indication: RHEUMATOID ARTHRITIS
     Dosage: TWICE DAILY
  4. ARAVA [Concomitant]
     Indication: ARTHRITIS
  5. ALBUTEROL [Concomitant]
     Indication: BRONCHITIS
     Dosage: 2 PUFFS EVERY 4-6 HOURS
  6. NASONEX [Concomitant]
     Indication: SINUSITIS
     Dosage: ONE SQUIRT EACH NOSTRIL DAILY
  7. XANAX [Concomitant]
     Indication: ANXIETY
     Dosage: 1/2-1 TABLET
  8. HCTZ [Concomitant]
     Indication: HYPERTENSION
     Dosage: DAILY
  9. TRAMADOL [Concomitant]
     Indication: PAIN

REACTIONS (12)
  - Anxiety [Not Recovered/Not Resolved]
  - Bronchitis [Not Recovered/Not Resolved]
  - Sinusitis [Not Recovered/Not Resolved]
  - Hypertension [Not Recovered/Not Resolved]
  - Joint stiffness [Not Recovered/Not Resolved]
  - Joint swelling [Not Recovered/Not Resolved]
  - Arthralgia [Not Recovered/Not Resolved]
  - Haemorrhage [Not Recovered/Not Resolved]
  - Chest pain [Not Recovered/Not Resolved]
  - Urinary tract infection [Recovering/Resolving]
  - Wrong technique in drug usage process [Recovering/Resolving]
  - Incorrect dose administered [Recovering/Resolving]
